FAERS Safety Report 6942914-4 (Version None)
Quarter: 2010Q3

REPORT INFORMATION
  Report Type: 
  Country: None (occurrence: None)
  Receive Date: 20100826
  Receipt Date: 20100824
  Transmission Date: 20110219
  Serious: Yes (Other)
  Sender: FDA-Public Use
  Company Number: CO-ROCHE-722980

PATIENT
  Sex: Female

DRUGS (4)
  1. CELLCEPT [Suspect]
     Dosage: FREQUENCY: QD
     Route: 048
     Dates: start: 20060606, end: 20100701
  2. OMEPRAZOLE [Concomitant]
     Dosage: FREQUENCY: QD
     Route: 048
  3. ENALAPRIL [Concomitant]
     Dosage: FREQUENCY: QD
     Route: 048
  4. LOVASTIN [Concomitant]
     Dosage: FREQUENCY: QD, DRUG REPORTED AS: LOVASTINE
     Route: 048

REACTIONS (1)
  - TRANSPLANT REJECTION [None]
